FAERS Safety Report 14406522 (Version 1)
Quarter: 2018Q1

REPORT INFORMATION
  Report Type: Spontaneous
  Country: US (occurrence: US)
  Receive Date: 20180118
  Receipt Date: 20180118
  Transmission Date: 20180509
  Serious: Yes (Hospitalization, Other)
  Sender: FDA-Public Use
  Company Number: US-PFIZER INC-2018023399

PATIENT
  Sex: Male

DRUGS (5)
  1. CHANTIX [Concomitant]
     Active Substance: VARENICLINE TARTRATE
     Dosage: UNK
  2. ENBREL [Suspect]
     Active Substance: ETANERCEPT
     Dosage: UNK UNK, 2 TIMES/WK
     Route: 065
     Dates: end: 2014
  3. ENBREL [Suspect]
     Active Substance: ETANERCEPT
     Dosage: UNK UNK, QWK
     Route: 065
  4. METHOTREXATE SODIUM. [Suspect]
     Active Substance: METHOTREXATE SODIUM
     Dosage: 2.5 MG, BID
     Route: 065
     Dates: start: 201712
  5. ENBREL [Suspect]
     Active Substance: ETANERCEPT
     Indication: PSORIASIS
     Dosage: UNK UNK, 2 TIMES/WK
     Route: 065
     Dates: start: 2012

REACTIONS (9)
  - Injection site pain [Unknown]
  - Social avoidant behaviour [Unknown]
  - Musculoskeletal disorder [Unknown]
  - Drug intolerance [Unknown]
  - Lip blister [Unknown]
  - Neuralgia [Unknown]
  - Coronary artery occlusion [Recovered/Resolved]
  - Temperature intolerance [Unknown]
  - Intentional product misuse [Unknown]
